FAERS Safety Report 20774054 (Version 1)
Quarter: 2022Q2

REPORT INFORMATION
  Report Type: Spontaneous
  Country: US (occurrence: US)
  Receive Date: 20220502
  Receipt Date: 20220502
  Transmission Date: 20220721
  Serious: No
  Sender: FDA-Public Use
  Company Number: US-BAYER-2022A063100

PATIENT
  Age: 58 Year

DRUGS (1)
  1. MIRALAX [Suspect]
     Active Substance: POLYETHYLENE GLYCOL 3350
     Indication: Gastrointestinal disorder
     Dosage: UNK DOSE
     Route: 048
     Dates: start: 20220427, end: 20220427

REACTIONS (2)
  - Limb injury [Recovering/Resolving]
  - Product package associated injury [Recovering/Resolving]

NARRATIVE: CASE EVENT DATE: 20220427
